FAERS Safety Report 5407939-9 (Version None)
Quarter: 2007Q3

REPORT INFORMATION
  Report Type: 
  Country: None (occurrence: None)
  Receive Date: 20070803
  Receipt Date: 20070718
  Transmission Date: 20080115
  Serious: Yes (Hospitalization, Congenital Anomaly)
  Sender: FDA-Public Use
  Company Number: 8024136

PATIENT
  Sex: Male
  Weight: 3.2 kg

DRUGS (2)
  1. KEPPRA [Suspect]
     Indication: MYOCLONIC EPILEPSY
     Dosage: TRP
     Route: 064
     Dates: start: 20041006
  2. FOLIC ACID [Concomitant]

REACTIONS (6)
  - BRONCHOPNEUMONIA [None]
  - CARDIAC MURMUR [None]
  - DRUG EXPOSURE DURING PREGNANCY [None]
  - FEEDING DISORDER NEONATAL [None]
  - PULMONARY ARTERIAL PRESSURE DECREASED [None]
  - VENTRICULAR SEPTAL DEFECT [None]
